FAERS Safety Report 20609741 (Version 2)
Quarter: 2023Q2

REPORT INFORMATION
  Report Type: Other
  Country: DE (occurrence: None)
  Receive Date: 20220318
  Receipt Date: 20230613
  Transmission Date: 20230721
  Serious: Yes (Other)
  Sender: FDA-Public Use
  Company Number: DE-ROCHE-2721522

PATIENT
  Age: 31 Year
  Sex: Female

DRUGS (5)
  1. OCREVUS [Suspect]
     Active Substance: OCRELIZUMAB
     Indication: Relapsing-remitting multiple sclerosis
     Route: 042
     Dates: start: 20200818
  2. OCREVUS [Suspect]
     Active Substance: OCRELIZUMAB
     Dosage: 2ND MAINTENANCE DOSE
     Route: 042
     Dates: start: 20210831
  3. TYSABRI [Suspect]
     Active Substance: NATALIZUMAB
     Indication: Relapsing-remitting multiple sclerosis
     Dosage: DISCONTINUED
     Route: 065
  4. COMIRNATY [Suspect]
     Active Substance: TOZINAMERAN
     Indication: COVID-19 prophylaxis
     Dosage: FIRST VACCINE
     Route: 065
  5. COMIRNATY [Suspect]
     Active Substance: TOZINAMERAN
     Dosage: SECOND VACCINE
     Route: 065
     Dates: start: 20210608

REACTIONS (8)
  - Progressive relapsing multiple sclerosis [Recovering/Resolving]
  - Drug ineffective [Unknown]
  - Chills [Recovered/Resolved]
  - Pain in extremity [Recovered/Resolved]
  - Body temperature increased [Recovered/Resolved]
  - Poor peripheral circulation [Recovered/Resolved]
  - Nasopharyngitis [Recovered/Resolved]
  - COVID-19 [Recovered/Resolved]

NARRATIVE: CASE EVENT DATE: 20200818
